FAERS Safety Report 24857228 (Version 2)
Quarter: 2025Q1

REPORT INFORMATION
  Report Type: Spontaneous
  Country: JP (occurrence: JP)
  Receive Date: 20250117
  Receipt Date: 20250328
  Transmission Date: 20250408
  Serious: Yes (Other)
  Sender: JOHNSON AND JOHNSON
  Company Number: JP-JNJFOC-20250133135

PATIENT

DRUGS (1)
  1. EVITHROM [Suspect]
     Active Substance: HUMAN THROMBIN
     Indication: Haemorrhage
     Route: 065

REACTIONS (1)
  - Portal vein thrombosis [Recovering/Resolving]
